FAERS Safety Report 9289163 (Version 2)
Quarter: 2013Q2

REPORT INFORMATION
  Report Type: Spontaneous
  Country: DK (occurrence: DK)
  Receive Date: 20130514
  Receipt Date: 20130618
  Transmission Date: 20140414
  Serious: Yes (Hospitalization)
  Sender: FDA-Public Use
  Company Number: DK-BAXTER-2013BAX017269

PATIENT
  Age: 71 Year
  Sex: Male

DRUGS (10)
  1. SENDOXAN [Suspect]
     Indication: PLASMA CELL MYELOMA
     Route: 065
     Dates: start: 20130221
  2. SENDOXAN [Suspect]
     Route: 065
     Dates: start: 20130410
  3. VELCADE [Suspect]
     Indication: PLASMA CELL MYELOMA
     Route: 065
     Dates: start: 20130221
  4. VELCADE [Suspect]
     Route: 065
     Dates: start: 20130418
  5. LENALIDOMIDE [Suspect]
     Indication: PRODUCT USED FOR UNKNOWN INDICATION
     Route: 065
     Dates: start: 20130221
  6. LENALIDOMIDE [Suspect]
     Route: 065
     Dates: start: 20130421
  7. DEXAMETHASONE [Suspect]
     Indication: PRODUCT USED FOR UNKNOWN INDICATION
     Route: 065
     Dates: start: 20130221
  8. DEXAMETHASONE [Suspect]
     Route: 065
     Dates: start: 20130419
  9. DOXORUBICIN HYDROCHLORIDE [Suspect]
     Indication: PLASMA CELL MYELOMA
     Dosage: DOSAGE FORM: LIPOSOME INJECTION
     Route: 042
     Dates: start: 20130221
  10. DOXORUBICIN HYDROCHLORIDE [Suspect]
     Dosage: DOSAGE FORM: LIPOSOME INJECTION
     Route: 042
     Dates: start: 20130410

REACTIONS (2)
  - Influenza like illness [Recovering/Resolving]
  - Dizziness [Unknown]
